FAERS Safety Report 9905720 (Version 2)
Quarter: 2014Q1

REPORT INFORMATION
  Report Type: Spontaneous
  Country: US (occurrence: US)
  Receive Date: 20140218
  Receipt Date: 20140218
  Transmission Date: 20141002
  Serious: Yes (Other)
  Sender: FDA-Public Use
  Company Number: US-GILEAD-2012-0052159

PATIENT
  Age: 80 Year
  Sex: Female

DRUGS (1)
  1. LETAIRIS [Suspect]
     Indication: PULMONARY HYPERTENSION
     Dosage: 10 MG, UNK
     Route: 048
     Dates: start: 20110208, end: 20120227

REACTIONS (5)
  - Anaemia [Recovered/Resolved]
  - Fluid retention [Recovered/Resolved]
  - Nasal congestion [Recovered/Resolved]
  - Weight increased [Recovered/Resolved]
  - Local swelling [Recovered/Resolved]
